FAERS Safety Report 22029055 (Version 2)
Quarter: 2023Q2

REPORT INFORMATION
  Report Type: Spontaneous
  Country: US (occurrence: US)
  Receive Date: 20230223
  Receipt Date: 20230522
  Transmission Date: 20230721
  Serious: No
  Sender: FDA-Public Use
  Company Number: US-BRISTOL-MYERS SQUIBB COMPANY-2023-026933

PATIENT
  Age: 87 Year
  Sex: Female
  Weight: 79.3 kg

DRUGS (2)
  1. REVLIMID [Suspect]
     Active Substance: LENALIDOMIDE
     Indication: Plasma cell myeloma
     Dosage: QDDAYS1-21Q35D
     Route: 048
  2. REVLIMID [Suspect]
     Active Substance: LENALIDOMIDE
     Dosage: FREQ: 14D Q28DAYS

REACTIONS (3)
  - Swelling [Unknown]
  - Dizziness [Not Recovered/Not Resolved]
  - Off label use [Unknown]
